FAERS Safety Report 9991006 (Version 1)
Quarter: 2014Q1

REPORT INFORMATION
  Report Type: Spontaneous
  Country: US (occurrence: US)
  Receive Date: 20140310
  Receipt Date: 20140310
  Transmission Date: 20141002
  Serious: No
  Sender: FDA-Public Use
  Company Number: US-ABBVIE-13P-163-1135224-00

PATIENT
  Age: 84 Year
  Sex: Female
  Weight: 70.37 kg

DRUGS (8)
  1. HUMIRA [Suspect]
     Indication: RHEUMATOID ARTHRITIS
     Dates: end: 201306
  2. METHOTREXATE [Concomitant]
     Indication: RHEUMATOID ARTHRITIS
  3. HUMALOG [Concomitant]
     Indication: DIABETES MELLITUS
     Dosage: BEFORE EACH MEAL
  4. LANTUS [Concomitant]
     Indication: DIABETES MELLITUS
     Dosage: AT BEDTIME
  5. CELEBREX [Concomitant]
     Indication: RHEUMATOID ARTHRITIS
  6. VITAMINS [Concomitant]
     Indication: VITAMIN SUPPLEMENTATION
  7. UNNAMED MEDICATION [Concomitant]
     Indication: OSTEOPOROSIS
     Route: 050
  8. UNNAMED MEDICATION [Concomitant]
     Indication: HYPERTENSION
     Route: 050

REACTIONS (2)
  - Laceration [Recovered/Resolved]
  - Excoriation [Recovered/Resolved]
